FAERS Safety Report 10452344 (Version 4)
Quarter: 2015Q1

REPORT INFORMATION
  Report Type: Report from Study
  Country: US (occurrence: US)
  Receive Date: 20140915
  Receipt Date: 20150312
  Transmission Date: 20150720
  Serious: Yes (Hospitalization)
  Sender: FDA-Public Use
  Company Number: US-VERTEX PHARMACEUTICALS-2014-003869

PATIENT
  Age: 29 Year
  Sex: Female

DRUGS (1)
  1. IVACAFTOR [Suspect]
     Active Substance: IVACAFTOR
     Indication: CYSTIC FIBROSIS
     Dosage: 150 MG, BID
     Route: 048
     Dates: start: 20120516

REACTIONS (7)
  - Nausea [Unknown]
  - Weight decreased [Unknown]
  - Lung infection [Unknown]
  - Infective pulmonary exacerbation of cystic fibrosis [Unknown]
  - Influenza [Unknown]
  - Gastrointestinal disorder [Unknown]
  - Chest pain [Unknown]

NARRATIVE: CASE EVENT DATE: 20140911
